FAERS Safety Report 8168740-9 (Version None)
Quarter: 2012Q1

REPORT INFORMATION
  Report Type: 
  Country: None (occurrence: None)
  Receive Date: 20120227
  Receipt Date: 20120221
  Transmission Date: 20120608
  Serious: Yes (Other)
  Sender: FDA-Public Use
  Company Number: US-GENZYME-CAMP-1002135

PATIENT
  Sex: Male

DRUGS (2)
  1. XENOPORT [Concomitant]
     Indication: PRODUCT USED FOR UNKNOWN INDICATION
     Dosage: VIA A CLINICAL TRIAL
     Route: 065
  2. CAMPATH [Suspect]
     Indication: MULTIPLE SCLEROSIS
     Dosage: UNK DOSE GIVEN EVERY OTHER YEAR
     Route: 065

REACTIONS (1)
  - HEMIPARESIS [None]
